FAERS Safety Report 14270948 (Version 1)
Quarter: 2017Q4

REPORT INFORMATION
  Report Type: Spontaneous
  Country: US (occurrence: US)
  Receive Date: 20171211
  Receipt Date: 20171211
  Transmission Date: 20180321
  Serious: Yes (Death)
  Sender: FDA-Public Use
  Company Number: US-PERRIGO-17US030697

PATIENT
  Age: 21 Year
  Sex: Female

DRUGS (1)
  1. ACETAMINOPHEN. [Suspect]
     Active Substance: ACETAMINOPHEN
     Indication: COMPLETED SUICIDE
     Dosage: UNKNOWN, UNKNOWN
     Route: 048

REACTIONS (7)
  - Pulseless electrical activity [Fatal]
  - Coma [Fatal]
  - Toxicity to various agents [Fatal]
  - Tachycardia [Fatal]
  - Bradycardia [Fatal]
  - Hypotension [Fatal]
  - Hypoxia [Fatal]
